FAERS Safety Report 9885182 (Version 2)
Quarter: 2014Q2

REPORT INFORMATION
  Report Type: Report from Study
  Country: US (occurrence: US)
  Receive Date: 20140210
  Receipt Date: 20140424
  Transmission Date: 20141212
  Serious: Yes (Hospitalization, Other)
  Sender: FDA-Public Use
  Company Number: US-PURDUE-USA-2014-0110943

PATIENT
  Age: 30 Year
  Sex: Male

DRUGS (12)
  1. OXY CR TAB [Suspect]
     Indication: INTERVERTEBRAL DISC DEGENERATION
     Dosage: UNK
     Route: 048
     Dates: start: 2013
  2. OXY CR TAB [Suspect]
     Dosage: 30 MG, Q12H
     Route: 048
     Dates: start: 20140108, end: 20140207
  3. OXYCODONE HYDROCHLORIDE (SIMILAR TO NDA 22-272) [Suspect]
     Indication: BREAKTHROUGH PAIN
     Dosage: 10 MG, 1 TAB UP TO BID PRN
     Route: 048
  4. OXYCODONE HYDROCHLORIDE (SIMILAR TO NDA 22-272) [Suspect]
     Dosage: 30 MG, BID
     Route: 048
  5. OXYCODONE HYDROCHLORIDE (SIMILAR TO NDA 22-272) [Suspect]
     Dosage: 10 MG, 1 TAB UP TO 6X/DAY PRN
     Route: 048
  6. OXYCODONE HYDROCHLORIDE (SIMILAR TO NDA 22-272) [Suspect]
     Dosage: 15 MG, 1 TAB UP TO 6X/DAY PRN
     Route: 048
  7. OXYCODONE HYDROCHLORIDE (SIMILAR TO NDA 22-272) [Suspect]
     Dosage: 15 MG, 1-2 TAB UP TO 5X/DAY PRN
     Route: 048
  8. OXYCODONE HYDROCHLORIDE (SIMILAR TO NDA 22-272) [Suspect]
     Dosage: 15 MG, 1 TAB EVERY FOUR HOURS PRN
  9. CELEXA                             /00582602/ [Concomitant]
     Indication: PRODUCT USED FOR UNKNOWN INDICATION
     Dosage: 40 MG, DAILY
     Route: 048
  10. CELEXA                             /00582602/ [Concomitant]
     Dosage: 60 MG, DAILY
     Route: 048
  11. CLONAZEPAM [Concomitant]
     Indication: PRODUCT USED FOR UNKNOWN INDICATION
     Dosage: 0.5 MG, QID
     Route: 048
  12. ARMOUR THYROID [Concomitant]
     Indication: PRODUCT USED FOR UNKNOWN INDICATION
     Dosage: 30 MG, BID
     Route: 048

REACTIONS (6)
  - Staphylococcal infection [Recovered/Resolved]
  - Cellulitis [Unknown]
  - Pasteurella infection [Unknown]
  - Animal bite [Unknown]
  - Abscess [Unknown]
  - Bronchitis [Unknown]
